FAERS Safety Report 12201632 (Version 1)
Quarter: 2016Q1

REPORT INFORMATION
  Report Type: Spontaneous
  Country: US (occurrence: US)
  Receive Date: 20160322
  Receipt Date: 20160322
  Transmission Date: 20160526
  Serious: No
  Sender: FDA-Public Use
  Company Number: US-SA-2015SA131550

PATIENT
  Age: 57 Year
  Sex: Male

DRUGS (2)
  1. XANAX [Concomitant]
     Active Substance: ALPRAZOLAM
     Route: 065
  2. NASACORT ALLERGY 24HR [Suspect]
     Active Substance: TRIAMCINOLONE ACETONIDE
     Indication: MULTIPLE ALLERGIES
     Dosage: FORM SPRAY, DOSE  55 MCG PER SPRAY, FREQUENCY: 2-3 SPRAYS, PRODUCT START YESTERDAY
     Route: 065
     Dates: end: 20150827

REACTIONS (1)
  - Drug ineffective [Unknown]
